FAERS Safety Report 17126896 (Version 1)
Quarter: 2019Q4

REPORT INFORMATION
  Report Type: Spontaneous
  Country: US (occurrence: US)
  Receive Date: 20191209
  Receipt Date: 20191209
  Transmission Date: 20200122
  Serious: Yes (Death)
  Sender: FDA-Public Use
  Company Number: US-ASTRAZENECA-2019SF75275

PATIENT
  Age: 254 Day
  Sex: Female
  Weight: 2.9 kg

DRUGS (4)
  1. POLY-VI-SOL [Concomitant]
     Active Substance: VITAMINS
  2. IRON [Concomitant]
     Active Substance: IRON
  3. GAS RELIEF [Concomitant]
     Active Substance: DIMETHICONE
     Route: 048
  4. SYNAGIS [Suspect]
     Active Substance: PALIVIZUMAB
     Indication: ANTIVIRAL PROPHYLAXIS
     Dosage: SYNAGIS-50MG/0.5 ML VL LIQUID, 15MG/KG-MONTHLY
     Route: 030
     Dates: start: 20191115

REACTIONS (1)
  - Death [Fatal]

NARRATIVE: CASE EVENT DATE: 20191130
